FAERS Safety Report 20701586 (Version 43)
Quarter: 2025Q4

REPORT INFORMATION
  Report Type: Report from Study
  Country: CO (occurrence: CO)
  Receive Date: 20220412
  Receipt Date: 20251216
  Transmission Date: 20260117
  Serious: Yes (Other)
  Sender: TAKEDA
  Company Number: CO-TAKEDA-CO201503667

PATIENT
  Age: 5 Year
  Sex: Male
  Weight: 30 kg

DRUGS (4)
  1. IDURSULFASE [Suspect]
     Active Substance: IDURSULFASE
     Indication: Mucopolysaccharidosis II
     Dosage: 12 MILLIGRAM, 1/WEEK
     Dates: start: 20141120
  2. IDURSULFASE [Suspect]
     Active Substance: IDURSULFASE
     Dosage: 15 MILLIGRAM, 1/WEEK
     Dates: start: 20241129
  3. IDURSULFASE [Suspect]
     Active Substance: IDURSULFASE
     Dosage: 12 MILLIGRAM, 1/WEEK
  4. IDURSULFASE [Suspect]
     Active Substance: IDURSULFASE
     Dosage: 18 MILLIGRAM, 1/WEEK

REACTIONS (24)
  - Syncope [Recovered/Resolved]
  - Influenza like illness [Unknown]
  - Illness [Not Recovered/Not Resolved]
  - Malaise [Recovering/Resolving]
  - Discouragement [Recovering/Resolving]
  - Viral infection [Unknown]
  - Product distribution issue [Unknown]
  - Influenza [Unknown]
  - Treatment noncompliance [Unknown]
  - Product availability issue [Unknown]
  - Off label use [Unknown]
  - Product prescribing error [Unknown]
  - Body height increased [Unknown]
  - Incorrect dose administered [Unknown]
  - Tachycardia [Recovering/Resolving]
  - Headache [Recovering/Resolving]
  - Hyperhidrosis [Recovered/Resolved]
  - Asthenia [Recovered/Resolved]
  - Pain [Recovered/Resolved]
  - Blood pressure decreased [Recovered/Resolved]
  - Inappropriate schedule of product administration [Unknown]
  - Product dose omission issue [Unknown]
  - Product prescribing issue [Unknown]
  - Pyrexia [Recovering/Resolving]

NARRATIVE: CASE EVENT DATE: 20141120
